FAERS Safety Report 5130900-9 (Version None)
Quarter: 2006Q4

REPORT INFORMATION
  Report Type: 
  Country: None (occurrence: None)
  Receive Date: 20061013
  Receipt Date: 20050110
  Transmission Date: 20070319
  Serious: Yes (Hospitalization, Other)
  Sender: FDA-Public Use
  Company Number: 2005010669

PATIENT
  Age: 56 Year
  Sex: Female
  Weight: 102.0593 kg

DRUGS (22)
  1. BEXTRA [Suspect]
     Indication: OSTEOARTHRITIS
     Dosage: 1 IN 1 D
     Dates: start: 20020101, end: 20050101
  2. BEXTRA [Suspect]
     Indication: PERIARTHRITIS
     Dosage: 1 IN 1 D
     Dates: start: 20020101, end: 20050101
  3. BEXTRA [Suspect]
     Indication: POLYMYALGIA RHEUMATICA
     Dosage: 1 IN 1 D
     Dates: start: 20020101, end: 20050101
  4. PREDNISONE TAB [Concomitant]
  5. SERETIDE MITE (FLUTICASONE PROPIONATE, SALMETEROL XINAFOATE) [Concomitant]
  6. SALBUTAMOL [Concomitant]
  7. ASPIRIN [Concomitant]
  8. BACLOFEN [Concomitant]
  9. LORAZEPAM [Concomitant]
  10. BELLASPON RETARD (BELLADONNA ALKALOIDS, ERGOTAMINE TARTRATE, PHENOBARB [Concomitant]
  11. NADOLOL [Concomitant]
  12. ESOMEPRAZOLE MAGNESIUM [Concomitant]
  13. NORTRIPTYLINE HCL [Concomitant]
  14. PRAVASTATIN SODIUM [Concomitant]
  15. ESTROGENS CONJUGATED [Concomitant]
  16. MONTELUKAST SODIUM [Concomitant]
  17. TIOTROPIUM BROMIDE [Concomitant]
  18. LEVOTHYROXINE SODIUM [Concomitant]
  19. TOPIRAMATE [Concomitant]
  20. SETRALINE HCL [Concomitant]
  21. ALL OTHER THERAPEUTIC PRODUCTS [Concomitant]
  22. ETODOLAC [Concomitant]

REACTIONS (12)
  - BONE GRAFT [None]
  - DRUG INEFFECTIVE [None]
  - ECZEMA [None]
  - HAEMORRHAGE [None]
  - INTRACRANIAL HYPOTENSION [None]
  - PERIARTHRITIS [None]
  - POST PROCEDURAL COMPLICATION [None]
  - POSTOPERATIVE THROMBOSIS [None]
  - PROCEDURAL COMPLICATION [None]
  - RASH [None]
  - SKIN BURNING SENSATION [None]
  - TREATMENT NONCOMPLIANCE [None]
